FAERS Safety Report 7355347-6 (Version None)
Quarter: 2011Q1

REPORT INFORMATION
  Report Type: 
  Country: None (occurrence: None)
  Receive Date: 20110316
  Receipt Date: 20110307
  Transmission Date: 20110831
  Serious: Yes (Hospitalization)
  Sender: FDA-Public Use
  Company Number: TR-MEDIMMUNE-MEDI-0012821

PATIENT
  Sex: Female
  Weight: 4.8 kg

DRUGS (1)
  1. SYNAGIS [Suspect]
     Route: 030
     Dates: start: 20110102

REACTIONS (6)
  - RESPIRATORY DISTRESS [None]
  - NASAL CONGESTION [None]
  - WHEEZING [None]
  - BRONCHITIS [None]
  - COUGH [None]
  - PRODUCTIVE COUGH [None]
